FAERS Safety Report 10246685 (Version 1)
Quarter: 2014Q2

REPORT INFORMATION
  Report Type: Spontaneous
  Country: DE (occurrence: DE)
  Receive Date: 20140619
  Receipt Date: 20140619
  Transmission Date: 20141212
  Serious: Yes (Death)
  Sender: FDA-Public Use
  Company Number: DE-MYLANLABS-2014S1014009

PATIENT
  Age: 62 Year
  Sex: Female

DRUGS (5)
  1. HUMALOG [Suspect]
     Indication: INTENTIONAL OVERDOSE
     Dosage: TWO OPEN AMPOULES FOUND NEXT TO HER BODY
     Route: 065
  2. MORPHINE [Suspect]
     Route: 065
  3. FENTANYL [Suspect]
     Dosage: TWO 150MICROG PATCHES REMOVED FROM UPPER ARM
     Route: 062
  4. METOCLOPRAMIDE [Concomitant]
     Indication: NAUSEA
     Route: 065
  5. METOCLOPRAMIDE [Concomitant]
     Indication: DIARRHOEA
     Route: 065

REACTIONS (3)
  - Intentional overdose [Fatal]
  - Hypoglycaemia [Fatal]
  - Completed suicide [Fatal]
